FAERS Safety Report 12853183 (Version 1)
Quarter: 2016Q4

REPORT INFORMATION
  Report Type: Spontaneous
  Country: US (occurrence: US)
  Receive Date: 20161014
  Receipt Date: 20161014
  Transmission Date: 20170207
  Serious: Yes (Hospitalization)
  Sender: FDA-Public Use
  Company Number: None

PATIENT
  Age: 76 Year
  Sex: Female

DRUGS (4)
  1. METOPROLOL. [Concomitant]
     Active Substance: METOPROLOL
  2. CAPECITABINE 500 MG TAB [Suspect]
     Active Substance: CAPECITABINE
     Indication: NEOPLASM MALIGNANT
     Dosage: CAPECITABINE 1500 MG - PO - BID FOR 2 WEEKS, 1 OFF
     Route: 048
     Dates: start: 20160112
  3. CETIRIZINE [Concomitant]
     Active Substance: CETIRIZINE HYDROCHLORIDE
  4. TRIAMTERENE AND HYDROCHLOROTHIAZIDE [Concomitant]
     Active Substance: HYDROCHLOROTHIAZIDE\TRIAMTERENE

REACTIONS (8)
  - Skin ulcer [None]
  - Anxiety [None]
  - Dehydration [None]
  - Diarrhoea [None]
  - Rash [None]
  - Pulmonary embolism [None]
  - Insomnia [None]
  - Nail discolouration [None]

NARRATIVE: CASE EVENT DATE: 20160531
